FAERS Safety Report 11123013 (Version 1)
Quarter: 2015Q2

REPORT INFORMATION
  Report Type: Spontaneous
  Country: US (occurrence: US)
  Receive Date: 20150519
  Receipt Date: 20150519
  Transmission Date: 20150821
  Serious: Yes (Hospitalization)
  Sender: FDA-Public Use
  Company Number: US-ASTRAZENECA-2015SE44357

PATIENT
  Age: 27523 Day
  Sex: Female
  Weight: 42.2 kg

DRUGS (3)
  1. ZOLPIDEM [Concomitant]
     Active Substance: ZOLPIDEM\ZOLPIDEM TARTRATE
     Indication: INSOMNIA
     Route: 048
     Dates: start: 2013
  2. SYNTHROID [Concomitant]
     Active Substance: LEVOTHYROXINE SODIUM
     Indication: THYROID DISORDER
     Route: 065
     Dates: start: 1994
  3. SYMBICORT [Suspect]
     Active Substance: BUDESONIDE\FORMOTEROL FUMARATE DIHYDRATE
     Indication: CHRONIC OBSTRUCTIVE PULMONARY DISEASE
     Dosage: 160 4.5 MG 2 PUFFS TWICE DAILY
     Route: 055
     Dates: start: 20141119, end: 20150506

REACTIONS (14)
  - Tongue blistering [Unknown]
  - Malaise [Unknown]
  - Pneumonia [Unknown]
  - Gingivitis [Unknown]
  - Drug hypersensitivity [Unknown]
  - Oral mucosal blistering [Unknown]
  - Oral fungal infection [Unknown]
  - Sensation of foreign body [Not Recovered/Not Resolved]
  - Dysphagia [Unknown]
  - Pneumonitis [Unknown]
  - Gastrooesophageal reflux disease [Unknown]
  - Dysphonia [Unknown]
  - Oropharyngeal pain [Unknown]
  - Wheezing [Unknown]

NARRATIVE: CASE EVENT DATE: 20150217
